FAERS Safety Report 5197355-X (Version None)
Quarter: 2006Q4

REPORT INFORMATION
  Report Type: 
  Country: None (occurrence: None)
  Receive Date: 20060929
  Receipt Date: 20060130
  Transmission Date: 20070319
  Serious: Yes (Death)
  Sender: FDA-Public Use
  Company Number: 05P-163-0320966-00

PATIENT
  Age: 27 Year
  Sex: Male
  Weight: 170 kg

DRUGS (2)
  1. DEPAKOTE ER [Suspect]
     Indication: BIPOLAR DISORDER
     Dosage: 500 MG, 2 TABS, TWICE DAILY, PER ORAL
     Route: 048
     Dates: start: 20051001
  2. DEPAKOTE ER [Suspect]
     Indication: IRRITABILITY
     Dosage: 500 MG, 2 TABS, TWICE DAILY, PER ORAL
     Route: 048
     Dates: start: 20051001

REACTIONS (1)
  - DEATH [None]
